FAERS Safety Report 4787112-8 (Version None)
Quarter: 2005Q4

REPORT INFORMATION
  Report Type: 
  Country: None (occurrence: None)
  Receive Date: 20051004
  Receipt Date: 20050923
  Transmission Date: 20060501
  Serious: Yes (Other)
  Sender: FDA-Public Use
  Company Number: US-GLAXOSMITHKLINE-A0575634A

PATIENT
  Sex: Female
  Weight: 54 kg

DRUGS (3)
  1. COMMIT [Suspect]
     Indication: DRUG USE FOR UNKNOWN INDICATION
     Route: 002
     Dates: start: 20021101
  2. NICORETTE [Suspect]
     Route: 002
  3. DILANTIN [Concomitant]

REACTIONS (6)
  - AGORAPHOBIA [None]
  - ANGER [None]
  - ANXIETY [None]
  - DEPENDENCE [None]
  - FEAR [None]
  - NERVOUSNESS [None]
